FAERS Safety Report 9828783 (Version 2)
Quarter: 2014Q1

REPORT INFORMATION
  Report Type: Spontaneous
  Country: FR (occurrence: FR)
  Receive Date: 20140117
  Receipt Date: 20140219
  Transmission Date: 20141002
  Serious: No
  Sender: FDA-Public Use
  Company Number: FR-JNJFOC-20140106044

PATIENT
  Age: 61 Year
  Sex: Female
  Weight: 52 kg

DRUGS (4)
  1. ALOSTIL 5% [Suspect]
     Indication: ALOPECIA
     Route: 061
     Dates: start: 20140202
  2. ALOSTIL 5% [Suspect]
     Indication: ALOPECIA
     Dosage: 5 SPRAYS, 3 TIMES A WEEK
     Route: 061
     Dates: start: 20130909, end: 20140108
  3. DETENSIEL [Concomitant]
     Indication: TACHYCARDIA
     Dosage: STRENGTH 10MG
     Route: 065
     Dates: start: 2002
  4. LEVOTHYROX [Concomitant]
     Indication: HYPOTHYROIDISM
     Dosage: STRENGTH 75 UG
     Route: 065
     Dates: start: 2012

REACTIONS (7)
  - Hallucination [Recovered/Resolved]
  - Incoherent [Recovered/Resolved]
  - Photopsia [Recovered/Resolved]
  - Disorientation [Recovered/Resolved]
  - Transient global amnesia [Recovered/Resolved]
  - Inappropriate schedule of drug administration [Recovered/Resolved]
  - Off label use [Recovered/Resolved]
